FAERS Safety Report 7378059-1 (Version None)
Quarter: 2011Q1

REPORT INFORMATION
  Report Type: 
  Country: None (occurrence: None)
  Receive Date: 20110328
  Receipt Date: 20110324
  Transmission Date: 20110831
  Serious: Yes (Life-Threatening)
  Sender: FDA-Public Use
  Company Number: JP-ASTRAZENECA-2011SE04579

PATIENT
  Age: 78 Year
  Sex: Female

DRUGS (5)
  1. DIOVAN [Concomitant]
     Route: 048
  2. SEROQUEL [Suspect]
     Route: 048
  3. CRESTOR [Suspect]
     Indication: DYSLIPIDAEMIA
     Route: 048
     Dates: start: 20081212, end: 20101106
  4. BUFFERIN [Concomitant]
     Route: 048
  5. ANTIDEPRESSANT [Concomitant]
     Route: 065
     Dates: start: 20101201

REACTIONS (15)
  - ALTERED STATE OF CONSCIOUSNESS [None]
  - INCONTINENCE [None]
  - DEHYDRATION [None]
  - ESCHERICHIA TEST POSITIVE [None]
  - HYPOPHAGIA [None]
  - RHABDOMYOLYSIS [None]
  - PYREXIA [None]
  - IRRITABILITY [None]
  - RESTLESSNESS [None]
  - CONTINUOUS HAEMODIAFILTRATION [None]
  - BACTERIAL PYELONEPHRITIS [None]
  - OVERDOSE [None]
  - DEPRESSION [None]
  - VIRAL INFECTION [None]
  - PHLEBITIS [None]
